FAERS Safety Report 9332581 (Version 1)
Quarter: 2013Q2

REPORT INFORMATION
  Report Type: Spontaneous
  Country: GB (occurrence: None)
  Receive Date: 20130603
  Receipt Date: 20130603
  Transmission Date: 20140414
  Serious: Yes (Other)
  Sender: FDA-Public Use
  Company Number: GER/UKI/13/0029667

PATIENT
  Age: 60 Year
  Sex: Male
  Weight: 113.2 kg

DRUGS (6)
  1. AMLODIPINE (AMLODIPINE) [Suspect]
     Indication: PRODUCT USED FOR UNKNOWN INDICATION
     Dates: start: 20130429
  2. CITALOPRAM (CITALOPRAM) [Concomitant]
  3. CLOPIDOGREL (CLOPIDOGREL) [Concomitant]
  4. CO-CODAMOL (PANADEINE CO) [Concomitant]
  5. LISINOPRIL (LISINOPRIL) [Concomitant]
  6. SIMVASTATIN (SIMVASTATIN) [Concomitant]

REACTIONS (1)
  - Drug eruption [None]
